FAERS Safety Report 6123869 (Version 3)
Quarter: 2013Q1

REPORT INFORMATION
  Report Type: Spontaneous
  Country: US (occurrence: US)
  Receive Date: 20060908
  Receipt Date: 20130307
  Transmission Date: 20140127
  Serious: Yes (Disabling)
  Sender: FDA-Public Use
  Company Number: US-JNJFOC-20060900196

PATIENT
  Sex: Male
  Weight: 68.04 kg

DRUGS (5)
  1. REMICADE [Suspect]
     Indication: PSORIATIC ARTHROPATHY
     Route: 042
     Dates: start: 20060502
  2. REMICADE [Suspect]
     Indication: PSORIATIC ARTHROPATHY
     Route: 042
     Dates: start: 20060322
  3. REMICADE [Suspect]
     Indication: PSORIATIC ARTHROPATHY
     Dosage: DOSE ALSO REPORTED AS 5-7 MG/KG
     Route: 042
     Dates: start: 20050816
  4. REMICADE [Suspect]
     Indication: PSORIATIC ARTHROPATHY
     Route: 042
     Dates: start: 20060725, end: 20060725
  5. METHOTREXATE [Concomitant]
     Indication: ARTHRITIS
     Route: 048

REACTIONS (1)
  - Demyelinating polyneuropathy [Not Recovered/Not Resolved]
